FAERS Safety Report 9113181 (Version 1)
Quarter: 2013Q1

REPORT INFORMATION
  Report Type: Spontaneous
  Country: NL (occurrence: NL)
  Receive Date: 20130211
  Receipt Date: 20130211
  Transmission Date: 20140127
  Serious: Yes (Death, Congenital Anomaly)
  Sender: FDA-Public Use
  Company Number: NL-ASTRAZENECA-2013SE09227

PATIENT
  Age: 0 Week
  Sex: 0

DRUGS (1)
  1. SEROQUEL [Suspect]
     Route: 048

REACTIONS (2)
  - Death [Fatal]
  - Macrosomia [Unknown]
